FAERS Safety Report 9201955 (Version 1)
Quarter: 2013Q2

REPORT INFORMATION
  Report Type: Spontaneous
  Country: US (occurrence: US)
  Receive Date: 20130401
  Receipt Date: 20130401
  Transmission Date: 20140414
  Serious: Yes (Hospitalization)
  Sender: FDA-Public Use
  Company Number: US-BAYER-2013-037451

PATIENT
  Age: 32 Year
  Sex: Female

DRUGS (4)
  1. YAZ [Suspect]
  2. FERROUS SULFATE [Concomitant]
     Dosage: UNK
     Dates: start: 200807
  3. SOMA [Concomitant]
     Dosage: OCCASIONALLY
     Dates: start: 20081103
  4. VITAMIN B12 [Concomitant]
     Dosage: SHOTS EVERY THREE MONTHS
     Dates: start: 20081103

REACTIONS (2)
  - Pulmonary embolism [None]
  - Deep vein thrombosis [None]
